FAERS Safety Report 9323338 (Version 1)
Quarter: 2013Q2

REPORT INFORMATION
  Report Type: Spontaneous
  Country: US (occurrence: US)
  Receive Date: 20130603
  Receipt Date: 20130603
  Transmission Date: 20140414
  Serious: Yes (Other)
  Sender: FDA-Public Use
  Company Number: US-TEVA-408576USA

PATIENT
  Age: 15 Year
  Sex: Male

DRUGS (2)
  1. VINCRISTINE [Suspect]
     Indication: B PRECURSOR TYPE ACUTE LEUKAEMIA
     Dosage: ACCORDING TO STANDARD INDUCTION HIGH-RISK PROTOCOL
     Route: 065
  2. PREDNISONE [Suspect]
     Indication: B PRECURSOR TYPE ACUTE LEUKAEMIA
     Dosage: ACCORDING TO STANDARD INDUCTION HIGH-RISK PROTOCOL
     Route: 065

REACTIONS (3)
  - Non-alcoholic steatohepatitis [Recovering/Resolving]
  - Neuropathy peripheral [Recovered/Resolved]
  - Toxicity to various agents [Recovering/Resolving]
